FAERS Safety Report 5402824-0 (Version None)
Quarter: 2007Q3

REPORT INFORMATION
  Report Type: 
  Country: None (occurrence: None)
  Receive Date: 20070730
  Receipt Date: 20070720
  Transmission Date: 20080115
  Serious: Yes (Congenital Anomaly)
  Sender: FDA-Public Use
  Company Number: 2007AL002965

PATIENT
  Age: 37 Year

DRUGS (2)
  1. DIAZEPAM [Suspect]
     Dosage: TRPL
  2. METHADONE HCL [Concomitant]

REACTIONS (8)
  - DEVELOPMENTAL DELAY [None]
  - DRUG EXPOSURE DURING PREGNANCY [None]
  - DRUG WITHDRAWAL SYNDROME NEONATAL [None]
  - MICROCEPHALY [None]
  - NYSTAGMUS [None]
  - OPTIC NERVE HYPOPLASIA [None]
  - POSTURE ABNORMAL [None]
  - VISUAL ACUITY REDUCED [None]
